FAERS Safety Report 25031584 (Version 1)
Quarter: 2025Q1

REPORT INFORMATION
  Report Type: Spontaneous
  Country: DE (occurrence: DE)
  Receive Date: 20250303
  Receipt Date: 20250303
  Transmission Date: 20250409
  Serious: Yes (Other)
  Sender: ALEXION PHARMACEUTICALS
  Company Number: DE-ASTRAZENECA-202502EEA022243DE

PATIENT

DRUGS (1)
  1. TAGRISSO [Suspect]
     Active Substance: OSIMERTINIB
     Route: 065

REACTIONS (3)
  - Foetal anaemia [Unknown]
  - Placental insufficiency [Unknown]
  - Premature labour [Unknown]
